FAERS Safety Report 6236983-7 (Version None)
Quarter: 2009Q2

REPORT INFORMATION
  Report Type: 
  Country: None (occurrence: None)
  Receive Date: 20090619
  Receipt Date: 20090310
  Transmission Date: 20091009
  Serious: No
  Sender: FDA-Public Use
  Company Number: US-ASTRAZENECA-2009UW06347

PATIENT
  Age: 24984 Day
  Sex: Male
  Weight: 95.3 kg

DRUGS (10)
  1. SYMBICORT [Suspect]
     Indication: ASTHMA
     Dosage: 4 PUFFS, BID
     Route: 055
     Dates: start: 20090201
  2. PROAIR HFA [Concomitant]
  3. INSULIN [Concomitant]
     Indication: DIABETES MELLITUS
  4. METFORMIN HCL [Concomitant]
  5. VASOTEC [Concomitant]
     Indication: HYPERTENSION
  6. ACTOS [Concomitant]
  7. NORVASC [Concomitant]
  8. ASACOL [Concomitant]
     Indication: CROHN'S DISEASE
  9. RHINOCORT [Concomitant]
  10. AVELOX [Concomitant]

REACTIONS (3)
  - NASAL CONGESTION [None]
  - PULMONARY CONGESTION [None]
  - WHEEZING [None]
